FAERS Safety Report 10202215 (Version 2)
Quarter: 2014Q2

REPORT INFORMATION
  Report Type: Spontaneous
  Country: US (occurrence: US)
  Receive Date: 20140528
  Receipt Date: 20140528
  Transmission Date: 20141212
  Serious: No
  Sender: FDA-Public Use
  Company Number: US-BRISTOL-MYERS SQUIBB COMPANY-20041174

PATIENT
  Age: 50 Year
  Sex: Male
  Weight: 109.75 kg

DRUGS (1)
  1. METFORMIN HCL [Suspect]

REACTIONS (2)
  - Gastric disorder [Recovering/Resolving]
  - Diarrhoea [Unknown]
